FAERS Safety Report 15525299 (Version 4)
Quarter: 2018Q4

REPORT INFORMATION
  Report Type: Spontaneous
  Country: RU (occurrence: RU)
  Receive Date: 20181018
  Receipt Date: 20181219
  Transmission Date: 20190205
  Serious: Yes (Hospitalization, Other)
  Sender: FDA-Public Use
  Company Number: RU-ASTRAZENECA-2018SE35435

PATIENT
  Age: 64 Year
  Sex: Male
  Weight: 90 kg

DRUGS (7)
  1. THROMBO ASS [Concomitant]
     Active Substance: ASPIRIN
     Dates: start: 201802
  2. LISINOPRIL. [Concomitant]
     Active Substance: LISINOPRIL
     Dates: start: 201803
  3. OMEZ [Concomitant]
     Active Substance: OMEPRAZOLE
  4. BRILINTA [Suspect]
     Active Substance: TICAGRELOR
     Indication: MYOCARDIAL INFARCTION
     Route: 048
     Dates: start: 20180215
  5. BETALOC ZOK [Suspect]
     Active Substance: METOPROLOL SUCCINATE
     Indication: TACHYCARDIA
     Route: 048
     Dates: start: 20180215
  6. AMARYL [Concomitant]
     Active Substance: GLIMEPIRIDE
     Dates: start: 201804
  7. CRESTOR [Suspect]
     Active Substance: ROSUVASTATIN CALCIUM
     Indication: BLOOD CHOLESTEROL ABNORMAL
     Route: 048
     Dates: start: 201604

REACTIONS (9)
  - Angina pectoris [Not Recovered/Not Resolved]
  - Swelling [Unknown]
  - Cholecystitis [Unknown]
  - Myocardial infarction [Recovered/Resolved]
  - Dyspnoea exertional [Not Recovered/Not Resolved]
  - Diabetes mellitus [Not Recovered/Not Resolved]
  - Vascular stent stenosis [Not Recovered/Not Resolved]
  - Blood pressure decreased [Unknown]
  - Dyspnoea at rest [Not Recovered/Not Resolved]

NARRATIVE: CASE EVENT DATE: 201802
